FAERS Safety Report 6611670-1 (Version None)
Quarter: 2010Q1

REPORT INFORMATION
  Report Type: 
  Country: None (occurrence: None)
  Receive Date: 20100303
  Receipt Date: 20100224
  Transmission Date: 20100710
  Serious: Yes (Hospitalization)
  Sender: FDA-Public Use
  Company Number: JP-BAYER-200915357BYL

PATIENT
  Age: 61 Year
  Sex: Male
  Weight: 60 kg

DRUGS (6)
  1. NEXAVAR [Suspect]
     Indication: HEPATIC NEOPLASM MALIGNANT
     Dosage: TOTAL DAILY DOSE: 800 MG  UNIT DOSE: 200 MG
     Route: 048
     Dates: start: 20091203, end: 20100104
  2. ALDACTONE [Concomitant]
     Indication: HEPATIC NEOPLASM MALIGNANT
     Dosage: UNIT DOSE: 25 MG
     Route: 048
  3. URSO 250 [Concomitant]
     Indication: HEPATIC NEOPLASM MALIGNANT
     Dosage: UNIT DOSE: 100 MG
     Route: 048
  4. MUCOSTA [Concomitant]
     Indication: GASTRITIS PROPHYLAXIS
     Dosage: UNIT DOSE: 100 MG
     Route: 048
     Dates: start: 20091203
  5. TAKEPRON [Concomitant]
     Indication: GASTROOESOPHAGEAL REFLUX PROPHYLAXIS
     Dosage: UNIT DOSE: 15 MG
     Route: 048
     Dates: start: 20091203
  6. PYDOXAL [Concomitant]
     Indication: PROPHYLAXIS
     Dosage: UNIT DOSE: 10 MG
     Route: 048
     Dates: start: 20091203, end: 20100104

REACTIONS (4)
  - ASPARTATE AMINOTRANSFERASE INCREASED [None]
  - DECREASED APPETITE [None]
  - HEPATIC FUNCTION ABNORMAL [None]
  - INTESTINAL OBSTRUCTION [None]
